FAERS Safety Report 5982370-6 (Version None)
Quarter: 2008Q4

REPORT INFORMATION
  Report Type: 
  Country: None (occurrence: None)
  Receive Date: 20081208
  Receipt Date: 20081125
  Transmission Date: 20090506
  Serious: Yes (Hospitalization)
  Sender: FDA-Public Use
  Company Number: US-BIOGENIDEC-2008BI032269

PATIENT
  Age: 61 Year
  Sex: Female

DRUGS (10)
  1. TYSABRI [Suspect]
     Indication: MULTIPLE SCLEROSIS
     Route: 042
     Dates: start: 20070926, end: 20081022
  2. TEGRETOL [Concomitant]
     Indication: MUSCLE SPASTICITY
  3. ELAVIL [Concomitant]
     Indication: DEPRESSION
  4. ZANAFLEX [Concomitant]
     Indication: MUSCLE SPASTICITY
  5. ATIVAN [Concomitant]
     Indication: ANXIETY
  6. VICODIN [Concomitant]
     Indication: PAIN
  7. ZOLOFT [Concomitant]
     Indication: DEPRESSION
  8. AMBIEN [Concomitant]
     Indication: INSOMNIA
  9. BACLOFEN [Concomitant]
     Indication: MUSCLE SPASMS
  10. PEPCID [Concomitant]
     Indication: DYSPEPSIA

REACTIONS (3)
  - FALL [None]
  - FEMUR FRACTURE [None]
  - MYOSITIS OSSIFICANS [None]
